FAERS Safety Report 8903617 (Version 1)
Quarter: 2012Q4

REPORT INFORMATION
  Report Type: 
  Country: SE (occurrence: SE)
  Receive Date: 20121112
  Receipt Date: 20121112
  Transmission Date: 20130627
  Serious: Yes (Hospitalization)
  Sender: FDA-Public Use
  Company Number: SE-PFIZER INC-2012279141

PATIENT
  Age: 73 Year
  Sex: Female
  Weight: 67 kg

DRUGS (8)
  1. GENOTROPIN [Suspect]
     Indication: GROWTH HORMONE DEFICIENCY
     Dosage: 0.3 mg, 1x/day,7 injections/week.
     Route: 058
     Dates: start: 20040511
  2. CORTISONE ACETATE [Concomitant]
     Indication: ACTH DECREASED
     Dosage: UNK
     Dates: start: 19940715
  3. LEVOTHYROXINE [Concomitant]
     Indication: TSH DECREASED
     Dosage: UNK
     Dates: start: 19940715
  4. ESTROGEN NOS [Concomitant]
     Indication: LUTEINISING HORMONE DEFICIENCY
     Dosage: UNK
     Dates: start: 19951115
  5. ESTROGEN NOS [Concomitant]
     Indication: FOLLICLE-STIMULATING HORMONE DEFICIENCY
  6. EVOREL [Concomitant]
     Indication: LUTEINISING HORMONE DEFICIENCY
     Dosage: UNK
     Dates: start: 19951115
  7. EVOREL [Concomitant]
     Indication: FOLLICLE-STIMULATING HORMONE DEFICIENCY
  8. PLENDIL [Concomitant]
     Indication: HYPERTENSION
     Dosage: UNK
     Dates: start: 20051101

REACTIONS (1)
  - Diarrhoea [Unknown]
